FAERS Safety Report 6425798-2 (Version None)
Quarter: 2009Q4

REPORT INFORMATION
  Report Type: 
  Country: None (occurrence: None)
  Receive Date: 20091103
  Receipt Date: 20090602
  Transmission Date: 20100525
  Serious: No
  Sender: FDA-Public Use
  Company Number: US-ABBOTT-09P-163-0577418-00

PATIENT
  Sex: Male
  Weight: 77.18 kg

DRUGS (2)
  1. BIAXIN [Suspect]
     Indication: RESPIRATORY TRACT CONGESTION
     Route: 048
     Dates: start: 20060101, end: 20060101
  2. BIAXIN [Suspect]
     Indication: SINUS DISORDER

REACTIONS (2)
  - FEELING ABNORMAL [None]
  - HEART RATE IRREGULAR [None]
